FAERS Safety Report 4453387-8 (Version None)
Quarter: 2004Q3

REPORT INFORMATION
  Report Type: 
  Country: None (occurrence: None)
  Receive Date: 20040920
  Receipt Date: 20040902
  Transmission Date: 20050211
  Serious: Yes (Hospitalization)
  Sender: FDA-Public Use
  Company Number: SE-JNJFOC-20040901431

PATIENT
  Age: 49 Year
  Sex: Female

DRUGS (9)
  1. RISPERDAL CONSTA [Suspect]
     Indication: SCHIZOPHRENIA
     Route: 030
  2. DISIPAL [Concomitant]
  3. ACETAMINOPHEN [Concomitant]
  4. PROPAVAN [Concomitant]
  5. NOZINAN [Concomitant]
  6. APOZEPAM [Concomitant]
  7. ZANTAC [Concomitant]
  8. CISORDINOL [Concomitant]
  9. ZOPIKLON [Concomitant]

REACTIONS (2)
  - PERIORBITAL OEDEMA [None]
  - URTICARIA [None]
